FAERS Safety Report 9834475 (Version 3)
Quarter: 2014Q1

REPORT INFORMATION
  Report Type: Spontaneous
  Country: BR (occurrence: BR)
  Receive Date: 20140122
  Receipt Date: 20140311
  Transmission Date: 20141002
  Serious: Yes (Other)
  Sender: FDA-Public Use
  Company Number: PHHY2014BR005899

PATIENT
  Age: 77 Year
  Sex: Male
  Weight: 95 kg

DRUGS (6)
  1. STALEVO [Suspect]
     Indication: PARKINSON^S DISEASE
     Dosage: 4 DF, DAILY (01 DF AT 06 AM, 01 DF AT 10 AM, 01 DF AT 02 PM AND 01 DF AT 06 PM)
     Route: 048
     Dates: end: 20140115
  2. STALEVO [Suspect]
     Dosage: 100 MG, UNK
     Route: 048
     Dates: start: 20140116
  3. DEPAKOTE [Suspect]
     Indication: CONVULSION
     Dosage: 1 DF, DAILY
     Route: 048
  4. FOLACIN [Concomitant]
     Indication: PLATELET DISORDER
     Dosage: 02 DF, DAILY
     Route: 048
  5. SIFROL [Concomitant]
     Indication: PARKINSON^S DISEASE
     Dosage: 1 DF(0.375 UNITS NOT REPORTED), QD
     Route: 048
  6. ZYPREXA [Concomitant]
     Indication: SLEEP DISORDER
     Dosage: 1 DF, DAILY
     Route: 048

REACTIONS (5)
  - Thrombosis [Recovered/Resolved]
  - Motor dysfunction [Not Recovered/Not Resolved]
  - Depression [Not Recovered/Not Resolved]
  - Drug ineffective [Unknown]
  - Decreased activity [Not Recovered/Not Resolved]
